FAERS Safety Report 9852689 (Version 2)
Quarter: 2014Q1

REPORT INFORMATION
  Report Type: Spontaneous
  Country: US (occurrence: US)
  Receive Date: 20140129
  Receipt Date: 20140330
  Transmission Date: 20141002
  Serious: Yes (Other)
  Sender: FDA-Public Use
  Company Number: US-GE HEALTHCARE MEDICAL DIAGNOSTICS-OSCN-PR-1311S-0104

PATIENT
  Sex: Male

DRUGS (6)
  1. OMNISCAN [Suspect]
     Indication: ARTERIOGRAM CAROTID
     Route: 042
     Dates: start: 20020715, end: 20020715
  2. GADOLINIUM (UNSPECIFIED) [Suspect]
     Indication: BACK PAIN
     Route: 042
     Dates: start: 20030430, end: 20030430
  3. MAGNEVIST [Suspect]
     Indication: BACK PAIN
     Route: 042
     Dates: start: 20010913, end: 20010913
  4. MAGNEVIST [Suspect]
     Indication: PRODUCT USED FOR UNKNOWN INDICATION
     Dates: start: 20030430, end: 20030430
  5. MAGNEVIST [Suspect]
     Indication: PRODUCT USED FOR UNKNOWN INDICATION
     Dates: start: 20050614, end: 20050614
  6. OPTIMARK [Suspect]
     Indication: HYPERPROLACTINAEMIA
     Route: 042
     Dates: start: 20050516, end: 20050516

REACTIONS (1)
  - Nephrogenic systemic fibrosis [Not Recovered/Not Resolved]
